FAERS Safety Report 5801110-4 (Version None)
Quarter: 2008Q3

REPORT INFORMATION
  Report Type: 
  Country: None (occurrence: None)
  Receive Date: 20080707
  Receipt Date: 20080627
  Transmission Date: 20090109
  Serious: Yes (Other)
  Sender: FDA-Public Use
  Company Number: US-WYE-H04748008

PATIENT
  Age: 15 Year
  Sex: Male

DRUGS (1)
  1. ROBITUSSIN DM [Suspect]
     Indication: DRUG ABUSE
     Dosage: UNKNOWN
     Route: 065

REACTIONS (1)
  - DRUG ABUSE [None]
